FAERS Safety Report 6023252-3 (Version None)
Quarter: 2008Q4

REPORT INFORMATION
  Report Type: 
  Country: None (occurrence: None)
  Receive Date: 20081230
  Receipt Date: 20081218
  Transmission Date: 20090506
  Serious: Yes (Death, Hospitalization, Other)
  Sender: FDA-Public Use
  Company Number: US-ELI_LILLY_AND_COMPANY-US200812004696

PATIENT
  Age: 80 Year
  Sex: Female

DRUGS (3)
  1. FORTEO [Suspect]
     Dates: start: 20070101
  2. PERCOCET [Concomitant]
  3. ASPIRIN [Concomitant]

REACTIONS (5)
  - FALL [None]
  - GASTRIC HAEMORRHAGE [None]
  - HEAD INJURY [None]
  - LOWER LIMB FRACTURE [None]
  - THROMBOSIS [None]
